FAERS Safety Report 7131014-9 (Version None)
Quarter: 2010Q4

REPORT INFORMATION
  Report Type: 
  Country: None (occurrence: None)
  Receive Date: 20101201
  Receipt Date: 20101126
  Transmission Date: 20110411
  Serious: Yes (Other)
  Sender: FDA-Public Use
  Company Number: B0660991A

PATIENT
  Sex: Female
  Weight: 51 kg

DRUGS (7)
  1. TYKERB [Suspect]
     Indication: BREAST CANCER
     Dosage: 1250MG PER DAY
     Route: 048
     Dates: start: 20100430, end: 20100610
  2. TYKERB [Suspect]
     Dosage: 1250MG PER DAY
     Route: 048
     Dates: start: 20100628, end: 20100917
  3. XELODA [Concomitant]
     Indication: BREAST CANCER
     Route: 048
     Dates: start: 20100430, end: 20100610
  4. XELODA [Concomitant]
     Dosage: 2400MG PER DAY
     Route: 048
     Dates: start: 20100628, end: 20100917
  5. PYDOXAL [Concomitant]
     Indication: PROPHYLAXIS
     Route: 048
     Dates: start: 20100430
  6. BIOFERMIN [Concomitant]
     Route: 048
     Dates: start: 20100430, end: 20100910
  7. LOPEMIN [Concomitant]
     Route: 048
     Dates: start: 20100430, end: 20100715

REACTIONS (1)
  - ARTHRALGIA [None]
